FAERS Safety Report 6267975-X (Version None)
Quarter: 2009Q3

REPORT INFORMATION
  Report Type: 
  Country: None (occurrence: None)
  Receive Date: 20090713
  Receipt Date: 20090701
  Transmission Date: 20100115
  Serious: Yes (Other)
  Sender: FDA-Public Use
  Company Number: A-NJ2009-25867

PATIENT
  Age: 61 Year
  Sex: Female

DRUGS (3)
  1. TRACLEER [Suspect]
     Indication: PULMONARY HYPERTENSION
     Dosage: 63.5 MG, BID, ORAL
     Route: 048
     Dates: start: 20090531
  2. PROVERA [Concomitant]
  3. ESTRIOL (ESTRIOL) [Concomitant]

REACTIONS (8)
  - BRACHIAL PLEXUS INJURY [None]
  - CONDITION AGGRAVATED [None]
  - DYSPEPSIA [None]
  - DYSPHAGIA [None]
  - FLUSHING [None]
  - NASAL CONGESTION [None]
  - NEUROPATHY PERIPHERAL [None]
  - OEDEMA PERIPHERAL [None]
